FAERS Safety Report 5318344-8 (Version None)
Quarter: 2007Q2

REPORT INFORMATION
  Report Type: 
  Country: None (occurrence: None)
  Receive Date: 20070507
  Receipt Date: 20070423
  Transmission Date: 20071010
  Serious: Yes (Hospitalization)
  Sender: FDA-Public Use
  Company Number: AU-SHR-AU-2005-015483

PATIENT
  Age: 33 Year
  Sex: Female

DRUGS (8)
  1. GM-CSF (9874) [Suspect]
     Indication: CROHN'S DISEASE
     Dosage: 6 A?G/KG, 1X/DAY
     Route: 058
     Dates: start: 20050628, end: 20050802
  2. NORDETTE-21 [Suspect]
     Indication: ORAL CONTRACEPTION
     Dosage: UNK, UNK
     Route: 048
     Dates: start: 19950101, end: 20050803
  3. SEREPAX [Concomitant]
     Indication: INSOMNIA
     Route: 048
     Dates: start: 20050601
  4. TRAMADOL HCL [Concomitant]
     Route: 048
     Dates: start: 20050601
  5. ACETAMINOPHEN W/ CODEINE [Concomitant]
     Indication: BACK PAIN
     Route: 048
     Dates: start: 20050706
  6. VITAMIN B-12 [Concomitant]
     Indication: VITAMIN B12 DEFICIENCY
     Route: 030
     Dates: start: 20000101
  7. PEDNISOLONE [Concomitant]
     Indication: CROHN'S DISEASE
     Dates: start: 19950601, end: 20020101
  8. AZATHIOPRINE [Concomitant]
     Indication: CROHN'S DISEASE
     Dates: start: 20000101, end: 20050421

REACTIONS (1)
  - TRANSIENT ISCHAEMIC ATTACK [None]
